FAERS Safety Report 8924306 (Version 2)
Quarter: 2013Q2

REPORT INFORMATION
  Report Type: Spontaneous
  Country: GB (occurrence: GB)
  Receive Date: 20121126
  Receipt Date: 20130523
  Transmission Date: 20140414
  Serious: Yes (Hospitalization)
  Sender: FDA-Public Use
  Company Number: GB-GLAXOSMITHKLINE-B0844874A

PATIENT
  Age: 24 Year
  Sex: Male

DRUGS (2)
  1. LAMOTRIGINE [Suspect]
     Indication: EPILEPSY
     Dosage: 800MG PER DAY
  2. CLOBAZAM [Suspect]
     Indication: EPILEPTIC AURA
     Dosage: 20MG AS REQUIRED
     Route: 065

REACTIONS (4)
  - Epilepsy [Unknown]
  - Suicide attempt [Unknown]
  - Feeling of despair [Unknown]
  - Intentional overdose [Unknown]
